FAERS Safety Report 19220582 (Version 3)
Quarter: 2021Q2

REPORT INFORMATION
  Report Type: Spontaneous
  Country: FR (occurrence: FR)
  Receive Date: 20210505
  Receipt Date: 20210603
  Transmission Date: 20210717
  Serious: Yes (Other)
  Sender: FDA-Public Use
  Company Number: FR-SA-2021SA138422

PATIENT
  Age: 72 Year
  Sex: Male

DRUGS (2)
  1. OXALIPLATIN. [Suspect]
     Active Substance: OXALIPLATIN
     Indication: TRANSITIONAL CELL CARCINOMA URETHRA
     Dosage: UNK
  2. GEMCITABINE. [Concomitant]
     Active Substance: GEMCITABINE
     Indication: TRANSITIONAL CELL CARCINOMA URETHRA
     Dosage: UNK

REACTIONS (12)
  - Visual field defect [Recovered/Resolved]
  - Optic disc disorder [Recovered/Resolved]
  - Toxic optic neuropathy [Recovered/Resolved]
  - Condition aggravated [Recovered/Resolved]
  - Oedema [Recovered/Resolved]
  - Cataract nuclear [Recovered/Resolved]
  - Cataract cortical [Recovered/Resolved]
  - Blindness [Recovered/Resolved]
  - Subretinal fluid [Recovered/Resolved]
  - Ocular toxicity [Recovered/Resolved]
  - Papilloedema [Recovered/Resolved]
  - Cataract subcapsular [Recovered/Resolved]
